FAERS Safety Report 5037036-6 (Version None)
Quarter: 2006Q2

REPORT INFORMATION
  Report Type: 
  Country: None (occurrence: None)
  Receive Date: 20060622
  Receipt Date: 20060608
  Transmission Date: 20061013
  Serious: Yes (Hospitalization)
  Sender: FDA-Public Use
  Company Number: A-US2006-12445

PATIENT
  Age: 59 Year
  Sex: Female

DRUGS (2)
  1. TRACLEER [Suspect]
     Dosage: 62.5 MG, BID, ORAL; 125 MG, BID, ORAL
     Route: 048
     Dates: start: 20060505, end: 20060601
  2. TRACLEER [Suspect]
     Dosage: 62.5 MG, BID, ORAL; 125 MG, BID, ORAL
     Route: 048
     Dates: start: 20060601, end: 20060601

REACTIONS (6)
  - ASTHENIA [None]
  - FLUSHING [None]
  - HEADACHE [None]
  - NAUSEA [None]
  - PANIC ATTACK [None]
  - TREMOR [None]
